FAERS Safety Report 7415337-1 (Version None)
Quarter: 2011Q2

REPORT INFORMATION
  Report Type: 
  Country: None (occurrence: None)
  Receive Date: 20110414
  Receipt Date: 20110404
  Transmission Date: 20111010
  Serious: Yes (Death, Life-Threatening, Hospitalization, Disabling, Other)
  Sender: FDA-Public Use
  Company Number: A0899312A

PATIENT
  Age: 65 Year
  Sex: Female

DRUGS (19)
  1. ADVAIR HFA [Concomitant]
  2. NORCO [Concomitant]
  3. CORTICOSTEROIDS [Concomitant]
     Indication: IDIOPATHIC THROMBOCYTOPENIC PURPURA
  4. ATARAX [Concomitant]
  5. CYCLOPHOSPHAMIDE [Concomitant]
     Indication: IDIOPATHIC THROMBOCYTOPENIC PURPURA
  6. PROMACTA [Suspect]
     Indication: IDIOPATHIC THROMBOCYTOPENIC PURPURA
     Dosage: 50MG TWICE PER DAY
     Route: 048
     Dates: start: 20090505, end: 20100629
  7. AMITRIPTYLINE [Concomitant]
  8. LASIX [Concomitant]
  9. ZOLPIDEM TARTRATE [Concomitant]
  10. FENTANYL [Concomitant]
  11. RITUXIMAB [Concomitant]
     Indication: IDIOPATHIC THROMBOCYTOPENIC PURPURA
  12. CELEBREX [Concomitant]
  13. CLARITIN [Concomitant]
  14. PREDNISONE [Concomitant]
  15. ALDACTONE [Concomitant]
  16. LEXAPRO [Concomitant]
  17. LISINOPRIL [Concomitant]
  18. LORAZEPAM [Concomitant]
  19. ZOFRAN [Concomitant]

REACTIONS (4)
  - FALL [None]
  - DISEASE PROGRESSION [None]
  - HAEMATOLOGICAL MALIGNANCY [None]
  - RESPIRATORY FAILURE [None]
